FAERS Safety Report 5569944-1 (Version None)
Quarter: 2007Q4

REPORT INFORMATION
  Report Type: 
  Country: None (occurrence: None)
  Receive Date: 20071217
  Receipt Date: 20071130
  Transmission Date: 20080405
  Serious: Yes (Life-Threatening, Hospitalization)
  Sender: FDA-Public Use
  Company Number: GXKR2007DK10443

PATIENT
  Age: 48 Year
  Sex: Female

DRUGS (1)
  1. VERAPAMIL [Suspect]
     Dosage: 10.08 G, ONCE/SINGLE, ORAL
     Route: 048

REACTIONS (11)
  - ALTERED STATE OF CONSCIOUSNESS [None]
  - BRADYCARDIA [None]
  - CONVULSION [None]
  - ELECTROENCEPHALOGRAM ABNORMAL [None]
  - HYPOXIC ENCEPHALOPATHY [None]
  - INTENTIONAL OVERDOSE [None]
  - LIVER DISORDER [None]
  - PERIPHERAL NERVE PALSY [None]
  - PULMONARY OEDEMA [None]
  - RENAL DISORDER [None]
  - SUICIDE ATTEMPT [None]
